FAERS Safety Report 5923079-4 (Version None)
Quarter: 2008Q4

REPORT INFORMATION
  Report Type: 
  Country: None (occurrence: None)
  Receive Date: 20081018
  Receipt Date: 20081007
  Transmission Date: 20090506
  Serious: Yes (Hospitalization)
  Sender: FDA-Public Use
  Company Number: FR-PFIZER INC-2008084779

PATIENT
  Sex: Female

DRUGS (1)
  1. CELEBREX [Suspect]
     Indication: BACK PAIN
     Dates: start: 20070101

REACTIONS (5)
  - ERYTHEMA [None]
  - HEART RATE INCREASED [None]
  - HYPOTENSION [None]
  - PRURITUS [None]
  - SWELLING [None]
